FAERS Safety Report 8048244-4 (Version None)
Quarter: 2011Q4

REPORT INFORMATION
  Report Type: 
  Country: None (occurrence: None)
  Receive Date: 20111209
  Receipt Date: 20111027
  Transmission Date: 20120403
  Serious: No
  Sender: FDA-Public Use
  Company Number: 2011SP050870

PATIENT
  Age: 48 Year
  Sex: Female

DRUGS (6)
  1. RIBAVIRIN [Suspect]
     Indication: HEPATITIS C
  2. TEMAZEPAM [Concomitant]
  3. VICTRELIS [Suspect]
     Indication: HEPATITIS C
     Dosage: 800 MG;TID; PO
     Route: 048
     Dates: start: 20110909
  4. PEGASYS [Suspect]
     Indication: HEPATITIS C
  5. OMEPRAZOLE [Concomitant]
  6. TRIAMTERENE [Concomitant]

REACTIONS (2)
  - FATIGUE [None]
  - NAUSEA [None]
